FAERS Safety Report 8434783-0 (Version None)
Quarter: 2012Q2

REPORT INFORMATION
  Report Type: 
  Country: None (occurrence: None)
  Receive Date: 20120614
  Receipt Date: 20120604
  Transmission Date: 20120825
  Serious: Yes (Other)
  Sender: FDA-Public Use
  Company Number: US-JNJFOC-20120602731

PATIENT
  Sex: Female

DRUGS (2)
  1. REMICADE [Suspect]
     Indication: RHEUMATOID ARTHRITIS
     Route: 042
     Dates: start: 20120404
  2. REMICADE [Suspect]
     Route: 042
     Dates: start: 20010116

REACTIONS (5)
  - DRUG INEFFECTIVE [None]
  - FATIGUE [None]
  - TYPE 2 DIABETES MELLITUS [None]
  - FEELING ABNORMAL [None]
  - SOMNOLENCE [None]
